FAERS Safety Report 18152012 (Version 1)
Quarter: 2020Q3

REPORT INFORMATION
  Report Type: Spontaneous
  Country: US (occurrence: US)
  Receive Date: 20200814
  Receipt Date: 20200814
  Transmission Date: 20201103
  Serious: Yes (Other)
  Sender: FDA-Public Use
  Company Number: US-JNJFOC-20200812077

PATIENT
  Sex: Male

DRUGS (1)
  1. REMICADE [Suspect]
     Active Substance: INFLIXIMAB
     Indication: UVEITIS
     Route: 042

REACTIONS (5)
  - Feeling abnormal [Unknown]
  - Lung disorder [Unknown]
  - Product use in unapproved indication [Unknown]
  - Chemotherapy [Unknown]
  - Off label use [Unknown]
